FAERS Safety Report 9448984 (Version 1)
Quarter: 2013Q3

REPORT INFORMATION
  Report Type: Spontaneous
  Country: DK (occurrence: DK)
  Receive Date: 20130808
  Receipt Date: 20130808
  Transmission Date: 20140515
  Serious: Yes (Other)
  Sender: FDA-Public Use
  Company Number: DK-009507513-1307DNK016370

PATIENT
  Age: 23 Year
  Sex: Female

DRUGS (1)
  1. NUVARING [Suspect]
     Indication: CONTRACEPTION
     Dosage: DOSE: CONTINUOUSLY IN 3 CYCLES.STRENGTH: 120+15 MICROGRAM/24 HOURS
     Route: 067
     Dates: start: 20130405, end: 20130607

REACTIONS (2)
  - Pregnancy with contraceptive device [Not Recovered/Not Resolved]
  - Nausea [Unknown]
